FAERS Safety Report 6317166-9 (Version None)
Quarter: 2009Q3

REPORT INFORMATION
  Report Type: 
  Country: None (occurrence: None)
  Receive Date: 20090819
  Receipt Date: 20090807
  Transmission Date: 20100115
  Serious: Yes (Hospitalization)
  Sender: FDA-Public Use
  Company Number: 230980K09USA

PATIENT
  Age: 55 Year
  Sex: Male
  Weight: 113 kg

DRUGS (7)
  1. REBIF [Suspect]
     Indication: MULTIPLE SCLEROSIS
     Dosage: 44 MCG, 3 IN 1 WEEKS, SUBCUTANEOUS
     Route: 058
     Dates: start: 20060525
  2. BACLOFEN [Concomitant]
  3. METOPROLOL (METOPROLOL  00376901/) [Concomitant]
  4. RYTHMOL [Concomitant]
  5. B12 (CYANOCOBALAMIN-TANNIN COMPLEX) [Concomitant]
  6. B COMPLEX VITAMINS (B-KOMPLEX) [Concomitant]
  7. EXFORGE [Concomitant]

REACTIONS (4)
  - ATRIAL FIBRILLATION [None]
  - CORONARY ARTERY OCCLUSION [None]
  - FATIGUE [None]
  - MYOCARDIAL INFARCTION [None]
